FAERS Safety Report 8614163 (Version 2)
Quarter: 2012Q4

REPORT INFORMATION
  Report Type: 
  Country: CA (occurrence: CA)
  Receive Date: 20120614
  Receipt Date: 20121001
  Transmission Date: 20130627
  Serious: Yes (Other)
  Sender: FDA-Public Use
  Company Number: PHHY2012CA050431

PATIENT
  Sex: Female

DRUGS (2)
  1. ACLASTA [Suspect]
     Indication: OSTEOPOROSIS
     Dosage: UNK UKN, UNK
     Route: 042
     Dates: start: 20110809
  2. ACLASTA [Suspect]
     Dosage: UNK UKN, UNK
     Route: 042
     Dates: start: 20120809

REACTIONS (6)
  - Bronchitis [Unknown]
  - Sciatic nerve neuropathy [Unknown]
  - Arthralgia [Unknown]
  - Pain in extremity [Unknown]
  - Dysstasia [Unknown]
  - Renal pain [Unknown]
